FAERS Safety Report 9436747 (Version 3)
Quarter: 2014Q1

REPORT INFORMATION
  Report Type: Report from Study
  Country: CA (occurrence: CA)
  Receive Date: 20130802
  Receipt Date: 20140220
  Transmission Date: 20141002
  Serious: Yes (Hospitalization, Other)
  Sender: FDA-Public Use
  Company Number: CA-JNJFOC-20130716927

PATIENT
  Age: 49 Year
  Sex: Male
  Weight: 93.5 kg

DRUGS (9)
  1. REMICADE [Suspect]
     Indication: CROHN^S DISEASE
     Route: 042
     Dates: start: 20100920, end: 20130724
  2. BRICANYL [Concomitant]
     Route: 065
  3. MONTELUKAST [Concomitant]
     Route: 065
  4. CITALOPRAM [Concomitant]
     Route: 065
  5. WELLBUTRIN [Concomitant]
     Route: 065
  6. VALSARTAN [Concomitant]
     Route: 065
  7. PURINETHOL [Concomitant]
     Route: 065
  8. FLOVENT [Concomitant]
     Route: 065
  9. ADVAIR [Concomitant]
     Route: 065

REACTIONS (4)
  - Intestinal stenosis [Unknown]
  - Postoperative abscess [Unknown]
  - Bacterial infection [Unknown]
  - Wound infection [Not Recovered/Not Resolved]
